FAERS Safety Report 17810494 (Version 1)
Quarter: 2020Q2

REPORT INFORMATION
  Report Type: Spontaneous
  Country: DZ (occurrence: DZ)
  Receive Date: 20200521
  Receipt Date: 20200521
  Transmission Date: 20200714
  Serious: Yes (Other)
  Sender: FDA-Public Use
  Company Number: DZ-SA-2020SA127171

PATIENT
  Sex: Female

DRUGS (1)
  1. COAPROVEL [Suspect]
     Active Substance: HYDROCHLOROTHIAZIDE\IRBESARTAN
     Indication: HYPERTENSION
     Dosage: UNK

REACTIONS (6)
  - Coma [Unknown]
  - Oedema peripheral [Unknown]
  - Blood sodium decreased [Unknown]
  - Flail chest [Unknown]
  - Blood potassium decreased [Unknown]
  - Weight decreased [Unknown]
